FAERS Safety Report 4480850-6 (Version None)
Quarter: 2004Q4

REPORT INFORMATION
  Report Type: 
  Country: None (occurrence: None)
  Receive Date: 20041021
  Receipt Date: 20040916
  Transmission Date: 20050328
  Serious: Yes (Death, Hospitalization)
  Sender: FDA-Public Use
  Company Number: 200412946JP

PATIENT
  Age: 70 Year
  Sex: Female

DRUGS (6)
  1. TAXOTERE [Suspect]
     Indication: BREAST CANCER
     Route: 041
     Dates: start: 20040715, end: 20040722
  2. HYSRON [Concomitant]
     Indication: BREAST CANCER
     Route: 048
     Dates: start: 20040127, end: 20040916
  3. MAGNESIUM OXIDE [Concomitant]
     Indication: CONSTIPATION
     Route: 048
     Dates: start: 20040616, end: 20040918
  4. KYTRIL [Concomitant]
     Indication: PREMEDICATION
     Route: 041
     Dates: start: 20040715, end: 20040722
  5. DECADRON [Concomitant]
     Indication: PREMEDICATION
     Route: 041
     Dates: start: 20040715, end: 20040722
  6. STRONG NEO-MINOPHAGEN C [Concomitant]
     Indication: HEPATIC FUNCTION ABNORMAL
     Dosage: DOSE: 2A
     Route: 041
     Dates: start: 20040610, end: 20040920

REACTIONS (10)
  - APHAGIA [None]
  - ASCITES [None]
  - DISEASE PROGRESSION [None]
  - HEPATIC FAILURE [None]
  - LIP EROSION [None]
  - LIP HAEMORRHAGE [None]
  - MOUTH HAEMORRHAGE [None]
  - PHARYNGITIS [None]
  - STOMATITIS [None]
  - THERAPEUTIC RESPONSE DECREASED [None]
